FAERS Safety Report 12286982 (Version 2)
Quarter: 2016Q2

REPORT INFORMATION
  Report Type: Report from Study
  Country: CA (occurrence: CA)
  Receive Date: 20160420
  Receipt Date: 20160520
  Transmission Date: 20160815
  Serious: Yes (Hospitalization, Other)
  Sender: FDA-Public Use
  Company Number: PHHY2016CA052006

PATIENT
  Age: 61 Year
  Sex: Male

DRUGS (2)
  1. GLEEVEC [Suspect]
     Active Substance: IMATINIB MESYLATE
     Dosage: 400 MG, BID
     Route: 065
     Dates: start: 20160419
  2. GLEEVEC [Suspect]
     Active Substance: IMATINIB MESYLATE
     Indication: GASTROINTESTINAL STROMAL TUMOUR
     Dosage: 400 MG, QD
     Route: 048
     Dates: start: 20160203

REACTIONS (7)
  - Haemoglobin decreased [Unknown]
  - Tumour haemorrhage [Unknown]
  - Incision site pain [Unknown]
  - Bowel movement irregularity [Unknown]
  - Pain [Unknown]
  - Flatulence [Unknown]
  - Eye swelling [Unknown]

NARRATIVE: CASE EVENT DATE: 20160506
